FAERS Safety Report 12520304 (Version 1)
Quarter: 2016Q2

REPORT INFORMATION
  Report Type: Spontaneous
  Country: US (occurrence: None)
  Receive Date: 20160630
  Receipt Date: 20160630
  Transmission Date: 20160815
  Serious: Yes (Hospitalization)
  Sender: FDA-Public Use
  Company Number: None

PATIENT
  Age: 27 Year
  Sex: Male
  Weight: 107.3 kg

DRUGS (5)
  1. CYTARABINE. [Suspect]
     Active Substance: CYTARABINE
     Dates: end: 20160616
  2. ONCASPAR [Suspect]
     Active Substance: PEGASPARGASE
     Dosage: 5250 UNITS
     Dates: end: 20160616
  3. DEXAMETHASONE. [Suspect]
     Active Substance: DEXAMETHASONE
     Dates: end: 20160610
  4. METHOTREXATE [Suspect]
     Active Substance: METHOTREXATE
     Dates: end: 20160606
  5. VINCRISTINE SULFATE. [Suspect]
     Active Substance: VINCRISTINE SULFATE
     Dates: end: 20160606

REACTIONS (8)
  - Disseminated intravascular coagulation [None]
  - Lactic acidosis [None]
  - Septic shock [None]
  - Anuria [None]
  - Cardiac arrest [None]
  - Respiratory failure [None]
  - Hepatic failure [None]
  - Bacterial test positive [None]

NARRATIVE: CASE EVENT DATE: 20160623
